FAERS Safety Report 9741948 (Version 4)
Quarter: 2014Q2

REPORT INFORMATION
  Report Type: Spontaneous
  Country: JP (occurrence: JP)
  Receive Date: 20131210
  Receipt Date: 20140409
  Transmission Date: 20141212
  Serious: Yes (Hospitalization)
  Sender: FDA-Public Use
  Company Number: JP-009507513-1312JPN003648

PATIENT
  Sex: 0

DRUGS (3)
  1. JANUVIA TABLETS 50MG [Suspect]
     Indication: DIABETES MELLITUS
     Dosage: 50 MG ONCE A DAY
     Route: 048
     Dates: end: 20131126
  2. JANUVIA TABLETS 50MG [Suspect]
     Dosage: 50 MG ONCE A DAY
     Route: 048
     Dates: start: 201312
  3. METGLUCO [Suspect]
     Dosage: 250 MG TWICE A DAY
     Route: 048

REACTIONS (2)
  - Ileus [Recovered/Resolved]
  - Abdominal discomfort [Unknown]
